FAERS Safety Report 6093709-8 (Version None)
Quarter: 2009Q1

REPORT INFORMATION
  Report Type: 
  Country: None (occurrence: None)
  Receive Date: 20090226
  Receipt Date: 20090218
  Transmission Date: 20090719
  Serious: Yes (Other)
  Sender: FDA-Public Use
  Company Number: US-ABBOTT-09P-163-0558193-00

PATIENT
  Sex: Male
  Weight: 91.708 kg

DRUGS (9)
  1. HUMIRA [Suspect]
     Indication: RHEUMATOID ARTHRITIS
     Route: 058
     Dates: start: 20070808
  2. HUMIRA [Suspect]
     Indication: COLITIS ULCERATIVE
  3. GLIPERIDE [Concomitant]
     Indication: DIABETES MELLITUS
     Dosage: UNKNOWN
  4. UNKNOWN BLOOD PRESSURE PILL [Concomitant]
     Indication: HYPERTENSION
     Dosage: UNKNOWN
  5. ASPIRIN [Concomitant]
     Indication: PROPHYLAXIS
  6. ASACOL [Concomitant]
     Indication: COLITIS ULCERATIVE
     Dosage: UNKNOWN
  7. VITAMIN D [Concomitant]
     Indication: VITAMIN SUPPLEMENTATION
     Dosage: UNKNOWN
  8. ALPHAGAN [Concomitant]
     Indication: GLAUCOMA
     Dosage: UNKNOWN
     Dates: start: 19990101
  9. TRUSOPT [Concomitant]
     Indication: GLAUCOMA
     Dosage: UNKNOWN
     Dates: start: 19990101

REACTIONS (5)
  - CONJUNCTIVAL PRIMARY ACQUIRED MELANOSIS [None]
  - INTRAOCULAR MELANOMA [None]
  - OCULAR HYPERAEMIA [None]
  - OCULAR NEOPLASM [None]
  - PAIN [None]
